FAERS Safety Report 17413062 (Version 1)
Quarter: 2020Q1

REPORT INFORMATION
  Report Type: Spontaneous
  Country: US (occurrence: US)
  Receive Date: 20200212
  Receipt Date: 20200212
  Transmission Date: 20200409
  Serious: No
  Sender: FDA-Public Use
  Company Number: None

PATIENT
  Age: 61 Year
  Sex: Female
  Weight: 87.75 kg

DRUGS (5)
  1. MULTIVITAMIN [Concomitant]
     Active Substance: VITAMINS
  2. ESTRGEN METHYLSTOS HS TABLETS [Concomitant]
  3. PROGESTERONE. [Concomitant]
     Active Substance: PROGESTERONE
  4. FLUOROURACIL 5% CREAM, GENERIC FOR EFUDEX 5% CREAM [Suspect]
     Active Substance: FLUOROURACIL
     Indication: PRECANCEROUS SKIN LESION
     Dosage: ?          QUANTITY:1 APPLY THIN LAYER;?
     Route: 061
     Dates: start: 20200128, end: 20200205
  5. PROBIOTIC [Concomitant]
     Active Substance: PROBIOTICS NOS

REACTIONS (6)
  - Burning sensation [None]
  - Vision blurred [None]
  - Systemic toxicity [None]
  - Facial pain [None]
  - Swelling of eyelid [None]
  - Erythema [None]

NARRATIVE: CASE EVENT DATE: 20200205
